FAERS Safety Report 8827227 (Version 2)
Quarter: 2012Q4

REPORT INFORMATION
  Report Type: 
  Country: US (occurrence: US)
  Receive Date: 20121008
  Receipt Date: 20121017
  Transmission Date: 20130627
  Serious: Yes (Disabling)
  Sender: FDA-Public Use
  Company Number: US-009507513-1210USA002136

PATIENT
  Age: 77 None
  Sex: Female

DRUGS (6)
  1. SYLATRON [Suspect]
     Indication: MALIGNANT MELANOMA
     Dosage: 5.3 Microgram, qw, 2 injections
     Route: 058
     Dates: start: 20120912
  2. SYLATRON [Suspect]
     Dosage: 5.3 Microgram, qw
     Route: 058
     Dates: start: 20120919
  3. CHROMIUM (UNSPECIFIED) [Concomitant]
  4. VITAMIN D (UNSPECIFIED) [Concomitant]
  5. ALEVE [Concomitant]
  6. MELATONIN [Concomitant]

REACTIONS (10)
  - Feeling abnormal [Recovering/Resolving]
  - Pain [Recovering/Resolving]
  - Asthenia [Recovering/Resolving]
  - Pyrexia [Recovered/Resolved]
  - Decreased appetite [Recovering/Resolving]
  - Headache [Recovering/Resolving]
  - Dizziness [Recovering/Resolving]
  - Nausea [Recovered/Resolved]
  - Rash [Recovering/Resolving]
  - Fatigue [Unknown]
